FAERS Safety Report 8935693 (Version 1)
Quarter: 2012Q4

REPORT INFORMATION
  Report Type: 
  Country: GB (occurrence: GB)
  Receive Date: 20121130
  Receipt Date: 20121130
  Transmission Date: 20130627
  Serious: Yes (Other)
  Sender: FDA-Public Use
  Company Number: GB-JNJFOC-20120800539

PATIENT
  Age: 13 Year
  Sex: Female
  Weight: 49 kg

DRUGS (2)
  1. REMICADE [Suspect]
     Indication: CROHN^S DISEASE
     Dosage: 0,2,4
     Route: 042
     Dates: start: 20090119, end: 20100122
  2. AZATHIOPRINE [Concomitant]
     Route: 065

REACTIONS (2)
  - Pustular psoriasis [Unknown]
  - Psoriasis [Not Recovered/Not Resolved]
